FAERS Safety Report 10929947 (Version 2)
Quarter: 2015Q1

REPORT INFORMATION
  Report Type: Report from Study
  Country: GB (occurrence: GB)
  Receive Date: 20150319
  Receipt Date: 20150324
  Transmission Date: 20150721
  Serious: Yes (Hospitalization)
  Sender: FDA-Public Use
  Company Number: GB-009507513-1503GBR008010

PATIENT
  Age: 59 Year
  Sex: Male

DRUGS (3)
  1. VORINOSTAT [Suspect]
     Active Substance: VORINOSTAT
     Indication: PLASMA CELL MYELOMA
     Dosage: 300 MG, FREQUENCY: D1-7, D15-21
     Route: 048
     Dates: start: 20150223, end: 20150310
  2. LENALIDOMIDE [Suspect]
     Active Substance: LENALIDOMIDE
     Indication: PLASMA CELL MYELOMA
     Dosage: 10 MG, FREQUENCY: D1-21
     Route: 048
     Dates: start: 20150223, end: 20150310
  3. RIVAROXABAN [Suspect]
     Active Substance: RIVAROXABAN
     Dosage: UNK

REACTIONS (1)
  - Liver function test abnormal [Recovering/Resolving]

NARRATIVE: CASE EVENT DATE: 20150311
